FAERS Safety Report 6820830-6 (Version None)
Quarter: 2010Q3

REPORT INFORMATION
  Report Type: 
  Country: None (occurrence: None)
  Receive Date: 20100707
  Receipt Date: 20070619
  Transmission Date: 20110219
  Serious: No
  Sender: FDA-Public Use
  Company Number: US-PFIZER INC-2007034906

PATIENT
  Sex: Male
  Weight: 96.16 kg

DRUGS (6)
  1. ZOLOFT [Suspect]
     Indication: SOCIAL AVOIDANT BEHAVIOUR
     Dates: start: 20030901
  2. ZOLOFT [Suspect]
     Indication: DEPRESSION
  3. ZOLOFT [Suspect]
     Indication: ANXIETY
  4. LISINOPRIL [Concomitant]
  5. MULTI-VITAMINS [Concomitant]
  6. XANAX [Concomitant]

REACTIONS (4)
  - DRUG WITHDRAWAL SYNDROME [None]
  - FEELING ABNORMAL [None]
  - IRRITABILITY [None]
  - SOCIAL AVOIDANT BEHAVIOUR [None]
